FAERS Safety Report 7067975-6 (Version None)
Quarter: 2010Q4

REPORT INFORMATION
  Report Type: 
  Country: None (occurrence: None)
  Receive Date: 20101028
  Receipt Date: 20101019
  Transmission Date: 20110411
  Serious: Yes (Other)
  Sender: FDA-Public Use
  Company Number: US-BAXTER-2010BH026322

PATIENT
  Age: 26 Year
  Sex: Female
  Weight: 86 kg

DRUGS (5)
  1. HYDROMORPHONE HCL [Suspect]
     Indication: PAIN
     Route: 042
     Dates: start: 20070810, end: 20070831
  2. HYDROMORPHONE HCL [Suspect]
     Route: 030
     Dates: start: 20070902, end: 20070902
  3. PROMETHAZINE [Concomitant]
     Indication: NAUSEA
     Route: 042
  4. PRENATAL VITAMINS [Concomitant]
     Indication: PRENATAL CARE
     Route: 048
  5. LACTATED RINGER'S [Concomitant]
     Indication: PRODUCT USED FOR UNKNOWN INDICATION
     Route: 065

REACTIONS (5)
  - DRUG EXPOSURE DURING PREGNANCY [None]
  - HYPERHIDROSIS [None]
  - PAIN [None]
  - PRE-ECLAMPSIA [None]
  - TREMOR [None]
